FAERS Safety Report 10251093 (Version 1)
Quarter: 2014Q2

REPORT INFORMATION
  Report Type: Spontaneous
  Country: US (occurrence: US)
  Receive Date: 20140620
  Receipt Date: 20140620
  Transmission Date: 20141212
  Serious: No
  Sender: FDA-Public Use
  Company Number: US-B.I. PHARMACEUTICALS,INC./RIDGEFIELD-2014-BI-26739BP

PATIENT
  Age: 60 Year
  Sex: Female
  Weight: 82 kg

DRUGS (1)
  1. COMBIVENT [Suspect]
     Indication: SARCOIDOSIS
     Dosage: STRENGTH: 20 MCG / 100 MCG; DAILY DOSE: 20 MCG/100 MCG
     Route: 055
     Dates: start: 201401

REACTIONS (5)
  - Ear congestion [Recovered/Resolved]
  - Dyspnoea [Recovered/Resolved]
  - Musculoskeletal chest pain [Recovered/Resolved]
  - Off label use [Unknown]
  - Drug ineffective [Recovered/Resolved]
